FAERS Safety Report 6020223-8 (Version None)
Quarter: 2008Q4

REPORT INFORMATION
  Report Type: 
  Country: None (occurrence: None)
  Receive Date: 20081226
  Receipt Date: 20081216
  Transmission Date: 20090506
  Serious: Yes (Other)
  Sender: FDA-Public Use
  Company Number: PHHY2008DE32435

PATIENT
  Sex: Female
  Weight: 61 kg

DRUGS (7)
  1. ZOMETA [Suspect]
     Indication: METASTASES TO BONE
     Dosage: 4 MG EVERY 4 WEEKS
     Route: 042
     Dates: start: 20061130, end: 20080910
  2. TAXOTERE [Concomitant]
     Indication: BREAST CANCER
     Dosage: 12 CYCLES
     Route: 042
     Dates: start: 20070201, end: 20070608
  3. CYCLOPHOSPHAMIDE + EPIRUBICIN [Concomitant]
     Indication: BREAST CANCER
     Dosage: 3 CYCLES
     Route: 042
     Dates: start: 20061130, end: 20070708
  4. ANASTROZOLE [Concomitant]
     Indication: BREAST CANCER
     Dosage: 1 MG/D
     Route: 048
     Dates: start: 20070615, end: 20071127
  5. TAMOXIFEN [Concomitant]
     Indication: BREAST CANCER
     Dosage: UNK
     Route: 048
     Dates: start: 20080603, end: 20080825
  6. AROMASIN [Concomitant]
     Indication: BREAST CANCER
     Dosage: UNK
     Route: 048
     Dates: start: 20071127, end: 20080110
  7. FASLODEX [Concomitant]
     Indication: BREAST CANCER
     Dosage: UNK
     Route: 048
     Dates: start: 20080602

REACTIONS (3)
  - BONE PAIN [None]
  - GENERAL PHYSICAL HEALTH DETERIORATION [None]
  - OSTEONECROSIS [None]
